FAERS Safety Report 20510636 (Version 2)
Quarter: 2022Q1

REPORT INFORMATION
  Report Type: Other
  Country: US (occurrence: None)
  Receive Date: 20220224
  Receipt Date: 20220302
  Transmission Date: 20220423
  Serious: Yes (Death)
  Sender: FDA-Public Use
  Company Number: US-ROCHE-3031027

PATIENT
  Sex: Female

DRUGS (1)
  1. XELODA [Suspect]
     Active Substance: CAPECITABINE
     Indication: Breast cancer female
     Dosage: TAKE 2 TABLET(S) BY MOUTH TWICE A DAY FOR 14 DAYS ON, THEN 7 DAYS OFF
     Route: 048

REACTIONS (1)
  - Metastases to lung [Fatal]
